FAERS Safety Report 7824179-4 (Version None)
Quarter: 2011Q4

REPORT INFORMATION
  Report Type: 
  Country: None (occurrence: None)
  Receive Date: 20111019
  Receipt Date: 20111013
  Transmission Date: 20120403
  Serious: Yes (Death, Hospitalization, Other)
  Sender: FDA-Public Use
  Company Number: BR-ABBOTT-09P-020-0604429-00

PATIENT
  Sex: Female

DRUGS (7)
  1. METHOTREXATE [Suspect]
     Indication: PRODUCT USED FOR UNKNOWN INDICATION
     Dates: start: 20080101, end: 20090301
  2. METICORTEN [Concomitant]
     Indication: DYSPNOEA
     Route: 048
  3. UNKNOWN MEDICATION [Concomitant]
     Indication: PAIN
  4. PENTOX [Concomitant]
     Indication: CARDIOVASCULAR DISORDER
     Dosage: 1 OR 2 TABLETS DAILY
     Route: 048
  5. CORTICOSTEROIDS [Concomitant]
     Indication: PRODUCT USED FOR UNKNOWN INDICATION
  6. UNKNOWN MEDICATION [Concomitant]
     Indication: HYPOTHYROIDISM
  7. HUMIRA [Suspect]
     Indication: RHEUMATOID ARTHRITIS
     Route: 058
     Dates: start: 20090726

REACTIONS (7)
  - CARDIOMYOPATHY [None]
  - PULMONARY HYPERTENSION [None]
  - CARDIOVASCULAR DISORDER [None]
  - CARDIAC ARREST [None]
  - DYSPNOEA [None]
  - RESPIRATORY FAILURE [None]
  - EMBOLISM [None]
